FAERS Safety Report 8451202-9 (Version None)
Quarter: 2012Q2

REPORT INFORMATION
  Report Type: 
  Country: None (occurrence: None)
  Receive Date: 20120620
  Receipt Date: 20120305
  Transmission Date: 20120825
  Serious: No
  Sender: FDA-Public Use
  Company Number: US-VERTEX PHARMACEUTICALS INC.-AE-2011-004744

PATIENT
  Sex: Male
  Weight: 86.26 kg

DRUGS (10)
  1. CYMBALTA [Concomitant]
  2. PEGASYS [Concomitant]
     Indication: HEPATITIS C
     Route: 058
     Dates: start: 20111111
  3. INCIVEK [Suspect]
     Indication: HEPATITIS C
     Route: 048
     Dates: start: 20111111, end: 20111229
  4. GABAPENTIN [Concomitant]
  5. ACETAMINOPHEN [Concomitant]
  6. RIBAVIRIN [Concomitant]
     Indication: HEPATITIS C
     Route: 048
     Dates: start: 20111111
  7. SLEEPING PILL [Concomitant]
  8. CLARITIN [Concomitant]
  9. REMERON [Concomitant]
  10. TRIAMCINOLONE [Concomitant]

REACTIONS (6)
  - RECTAL HAEMORRHAGE [None]
  - HAEMORRHOIDS [None]
  - RASH PAPULAR [None]
  - RASH PRURITIC [None]
  - PROCTALGIA [None]
  - PRURITUS [None]
